FAERS Safety Report 7762026 (Version 2)
Quarter: 2012Q4

REPORT INFORMATION
  Report Type: 
  Country: US (occurrence: None)
  Receive Date: 20101201
  Receipt Date: 20120830
  Transmission Date: 20130627
  Serious: Yes (Hospitalization)
  Sender: FDA-Public Use
  Company Number: 2010AP002442

PATIENT
  Age: 55 Year
  Sex: Female

DRUGS (3)
  1. CYCLOSPORINE [Suspect]
     Indication: PUSTULAR PSORIASIS
     Dosage: 5 MG/KG/QD
  2. METHOTREXATE [Concomitant]
  3. ADALIMUMAB [Suspect]
     Indication: PSORIATIC ARTHRITIS

REACTIONS (12)
  - Hypercholesterolaemia [None]
  - Hypertension [None]
  - Hyperkalaemia [None]
  - Fatigue [None]
  - Nausea [None]
  - Weight decreased [None]
  - Abdominal pain [None]
  - Small intestinal obstruction [None]
  - Pustular psoriasis [None]
  - Condition aggravated [None]
  - B-cell lymphoma [None]
  - Bone lesion [None]
